FAERS Safety Report 7122522-5 (Version None)
Quarter: 2010Q4

REPORT INFORMATION
  Report Type: 
  Country: None (occurrence: None)
  Receive Date: 20101122
  Receipt Date: 20101122
  Transmission Date: 20110411
  Serious: Yes (Hospitalization)
  Sender: FDA-Public Use
  Company Number: None

PATIENT
  Age: 66 Year
  Sex: Male
  Weight: 116.57 kg

DRUGS (1)
  1. SULFAMETHOXAZOLE AND TRIMETHOPRIM [Suspect]
     Indication: INFECTION
     Dosage: 1 TAB BID PO
     Route: 048
     Dates: start: 20100201, end: 20100202

REACTIONS (3)
  - CELLULITIS [None]
  - DRUG HYPERSENSITIVITY [None]
  - URTICARIA [None]
